FAERS Safety Report 14577123 (Version 1)
Quarter: 2018Q1

REPORT INFORMATION
  Report Type: Spontaneous
  Country: US (occurrence: US)
  Receive Date: 20180225
  Receipt Date: 20180225
  Transmission Date: 20180509
  Serious: Yes (Life-Threatening, Hospitalization)
  Sender: FDA-Public Use
  Company Number: None

PATIENT
  Age: 75 Year
  Sex: Female
  Weight: 60 kg

DRUGS (7)
  1. OMEGA 3 1200 MG DAILY [Concomitant]
  2. APIXABAN [Suspect]
     Active Substance: APIXABAN
     Indication: DEEP VEIN THROMBOSIS
     Route: 048
  3. ACETAMINOPHEN 650 MG PRN [Concomitant]
  4. HYDROCODONE/APAP 5/325 1-2 TABLETS EVERY 4 HOURS PRN [Concomitant]
  5. ASPIRIN 81 MG DAILY [Concomitant]
  6. CHOLECALCIFEROL 2000 UNITS DAILY [Concomitant]
  7. FERROUS SULFATE 325 MG TWICE DAILY [Concomitant]

REACTIONS (10)
  - Malaise [None]
  - Asthenia [None]
  - Chest pain [None]
  - Electrocardiogram ST segment abnormal [None]
  - Chest discomfort [None]
  - Troponin increased [None]
  - Melaena [None]
  - Fatigue [None]
  - Dyspnoea exertional [None]
  - Occult blood positive [None]

NARRATIVE: CASE EVENT DATE: 20170209
